FAERS Safety Report 9783320 (Version 3)
Quarter: 2014Q1

REPORT INFORMATION
  Report Type: Spontaneous
  Country: IT (occurrence: IT)
  Receive Date: 20131226
  Receipt Date: 20140210
  Transmission Date: 20141002
  Serious: Yes (Hospitalization)
  Sender: FDA-Public Use
  Company Number: IT-PFIZER INC-2013366176

PATIENT
  Age: 74 Year
  Sex: Male
  Weight: 70 kg

DRUGS (8)
  1. FARMORUBICINA [Suspect]
     Indication: GASTRIC CANCER
     Dosage: 75.59 MG, CYCLIC
     Route: 042
     Dates: start: 20130827, end: 20130917
  2. FLUOROURACIL ^TEVA^ [Suspect]
     Indication: GASTRIC CANCER
     Dosage: 2490 MG, CYCLIC
     Route: 042
     Dates: start: 20130827, end: 20130917
  3. CISPLATIN [Suspect]
     Indication: GASTRIC CANCER
     Dosage: 90.71 MG, CYCLIC
     Route: 042
     Dates: start: 20130827, end: 20130917
  4. PANTOPRAZOLE SODIUM [Concomitant]
     Indication: GASTROOESOPHAGEAL REFLUX PROPHYLAXIS
     Dosage: 40 MG, UNK
     Route: 048
     Dates: start: 20130810, end: 20131211
  5. TATIONIL [Concomitant]
     Indication: PREMEDICATION
     Dosage: 3175 MG, UNK
     Route: 042
     Dates: start: 20130827, end: 20130917
  6. ALOXI [Concomitant]
     Indication: PROPHYLAXIS OF NAUSEA AND VOMITING
     Dosage: 250 UG, UNK
     Route: 042
     Dates: start: 20130827, end: 20130917
  7. DEXAMETHASONE PHOSPHATE [Concomitant]
     Indication: PROPHYLAXIS OF NAUSEA AND VOMITING
     Dosage: 20 MG, UNK
     Route: 042
     Dates: start: 20130827, end: 20130917
  8. ZARZIO [Concomitant]
     Indication: COLONY STIMULATING FACTOR PROPHYLAXIS
     Dosage: UNK
     Route: 058
     Dates: start: 20130910, end: 20130913

REACTIONS (4)
  - Diverticulitis [Recovered/Resolved]
  - Febrile neutropenia [Recovered/Resolved]
  - Sepsis [Recovered/Resolved]
  - Stomatitis [Recovered/Resolved]
